FAERS Safety Report 21890701 (Version 1)
Quarter: 2023Q1

REPORT INFORMATION
  Report Type: Spontaneous
  Country: US (occurrence: None)
  Receive Date: 20230119
  Receipt Date: 20230119
  Transmission Date: 20230417
  Serious: Yes (Death)
  Sender: FDA-Public Use
  Company Number: None

PATIENT
  Age: 66 Year
  Sex: Male

DRUGS (3)
  1. LOKELMA [Suspect]
     Active Substance: SODIUM ZIRCONIUM CYCLOSILICATE
     Dosage: FREQUENCY : DAILY;?
     Dates: start: 20221004, end: 20221221
  2. CELLCEPT [Concomitant]
     Active Substance: MYCOPHENOLATE MOFETIL
  3. CYCLOSPORINE [Concomitant]
     Active Substance: CYCLOSPORINE

REACTIONS (1)
  - Death [None]

NARRATIVE: CASE EVENT DATE: 20221221
